FAERS Safety Report 6196150-2 (Version None)
Quarter: 2009Q2

REPORT INFORMATION
  Report Type: 
  Country: None (occurrence: None)
  Receive Date: 20090520
  Receipt Date: 20090513
  Transmission Date: 20091009
  Serious: Yes (Hospitalization)
  Sender: FDA-Public Use
  Company Number: US-BIOGENIDEC-2009BI013128

PATIENT
  Sex: Female

DRUGS (2)
  1. AVONEX [Suspect]
     Indication: MULTIPLE SCLEROSIS
     Route: 030
     Dates: start: 19960516
  2. PREDNISONE [Concomitant]
     Indication: MULTIPLE SCLEROSIS

REACTIONS (5)
  - BLINDNESS TRANSIENT [None]
  - BURSITIS [None]
  - FATIGUE [None]
  - MUSCULAR WEAKNESS [None]
  - OSTEONECROSIS [None]
